FAERS Safety Report 11499694 (Version 1)
Quarter: 2015Q3

REPORT INFORMATION
  Report Type: Spontaneous
  Country: US (occurrence: None)
  Receive Date: 20150911
  Receipt Date: 20150911
  Transmission Date: 20151125
  Serious: Yes (Other)
  Sender: FDA-Public Use
  Company Number: None

PATIENT
  Age: 6 Day
  Sex: Female
  Weight: .54 kg

DRUGS (2)
  1. INTRALIPID INFUSION [Concomitant]
  2. INTRALIPID [Suspect]
     Active Substance: EGG PHOSPHOLIPIDS\GLYCERIN\SOYBEAN OIL

REACTIONS (3)
  - Blood triglycerides increased [None]
  - Device computer issue [None]
  - Incorrect dose administered by device [None]

NARRATIVE: CASE EVENT DATE: 20150827
